FAERS Safety Report 13732329 (Version 1)
Quarter: 2017Q3

REPORT INFORMATION
  Report Type: Spontaneous
  Country: US (occurrence: US)
  Receive Date: 20170707
  Receipt Date: 20170707
  Transmission Date: 20171127
  Serious: No
  Sender: FDA-Public Use
  Company Number: US-SA-2017SA081589

PATIENT
  Age: 18 Year
  Sex: Female

DRUGS (1)
  1. SAR231893 [Suspect]
     Active Substance: DUPILUMAB
     Dosage: FREQUENCY- EVERY 2 WEEKS
     Route: 065
     Dates: start: 20170417

REACTIONS (8)
  - Cold sweat [Recovered/Resolved]
  - Ear discomfort [Recovered/Resolved]
  - Hyperhidrosis [Recovered/Resolved]
  - Rash [Recovered/Resolved]
  - Injection site urticaria [Not Recovered/Not Resolved]
  - Lip discolouration [Recovered/Resolved]
  - Injection site pruritus [Not Recovered/Not Resolved]
  - Dizziness [Recovered/Resolved]

NARRATIVE: CASE EVENT DATE: 20170417
